FAERS Safety Report 14938936 (Version 5)
Quarter: 2019Q2

REPORT INFORMATION
  Report Type: Report from Study
  Country: JP (occurrence: JP)
  Receive Date: 20180525
  Receipt Date: 20190531
  Transmission Date: 20190711
  Serious: Yes (Death, Life-Threatening, Hospitalization, Other)
  Sender: FDA-Public Use
  Company Number: JP-JNJFOC-20180532486

PATIENT
  Age: 47 Year
  Sex: Female
  Weight: 84 kg

DRUGS (51)
  1. SIMPONI [Suspect]
     Active Substance: GOLIMUMAB
     Indication: COLITIS ULCERATIVE
     Route: 058
     Dates: start: 20180227, end: 20180227
  2. FERROUS CITRATE NA [Concomitant]
     Active Substance: SODIUM FERROUS CITRATE
     Indication: ANAEMIA
     Route: 048
  3. CEFMETAZOLE NA [Concomitant]
     Active Substance: CEFMETAZOLE
     Route: 065
  4. THIAMINE DISULFIDE PHOSPHATE [Concomitant]
     Route: 042
  5. HYDROXYZINE HYDROCHLORIDE. [Concomitant]
     Active Substance: HYDROXYZINE HYDROCHLORIDE
     Route: 061
  6. SIMPONI [Suspect]
     Active Substance: GOLIMUMAB
     Indication: COLITIS ULCERATIVE
     Route: 058
     Dates: start: 20180213, end: 20180213
  7. URSO [Concomitant]
     Active Substance: URSODIOL
     Route: 048
  8. TAZOPIPE [Concomitant]
     Active Substance: PIPERACILLIN SODIUM\TAZOBACTAM SODIUM
     Route: 042
  9. SOSEGON [Concomitant]
     Active Substance: PENTAZOCINE
     Route: 065
  10. CLOSTRIDIUM BUTYRICUM [Concomitant]
     Active Substance: CLOSTRIDIUM BUTYRICUM SPORES STRAIN M-55
     Route: 048
  11. TERBINAFINE HYDROCHLORIDE. [Concomitant]
     Active Substance: TERBINAFINE HYDROCHLORIDE
     Route: 061
  12. GLUCOSE [Concomitant]
     Active Substance: DEXTROSE
     Route: 065
  13. POTASSIUM ASPARTATE [Concomitant]
     Active Substance: POTASSIUM ASPARTATE
     Route: 042
  14. SAIREITO [Concomitant]
     Active Substance: HERBALS
     Route: 048
     Dates: end: 20180407
  15. MIYA-BM [Concomitant]
     Active Substance: CLOSTRIDIUM BUTYRICUM SPORES STRAIN M-55
     Indication: COLITIS ULCERATIVE
     Route: 048
     Dates: end: 20180407
  16. CINAL [Concomitant]
     Active Substance: ASCORBIC ACID\CALCIUM PANTOTHENATE
     Route: 048
  17. REBAMIPIDE [Concomitant]
     Active Substance: REBAMIPIDE
     Indication: PROPHYLAXIS
     Route: 048
  18. MEDICON [Concomitant]
     Active Substance: DEXTROMETHORPHAN HYDROBROMIDE
     Route: 048
  19. REMINARON [Concomitant]
     Active Substance: GABEXATE MESYLATE
     Route: 065
  20. MEYLON [Concomitant]
     Active Substance: SODIUM BICARBONATE
     Route: 042
  21. FILGRASTIM BS [Concomitant]
     Active Substance: FILGRASTIM
     Route: 065
  22. NICARDIPINE HYDROCHLORIDE. [Concomitant]
     Active Substance: NICARDIPINE HYDROCHLORIDE
     Route: 065
  23. KAYTWO [Concomitant]
     Active Substance: MENATETRENONE
     Route: 042
  24. VEEN D [Concomitant]
     Active Substance: CALCIUM CHLORIDE\DEXTROSE\POTASSIUM CHLORIDE\SODIUM ACETATE\SODIUM CHLORIDE
     Route: 065
  25. POTASSIUM CHLORIDE. [Concomitant]
     Active Substance: POTASSIUM CHLORIDE
     Route: 065
  26. LOXOPROFEN [Concomitant]
     Active Substance: LOXOPROFEN
     Indication: PROPHYLAXIS
     Route: 048
  27. SOSEGON [Concomitant]
     Active Substance: PENTAZOCINE
     Route: 065
  28. ACETAMINOPHEN. [Concomitant]
     Active Substance: ACETAMINOPHEN
     Route: 042
  29. SALAZOSULFAPYRIDINE [Concomitant]
     Active Substance: SULFASALAZINE
     Indication: COLITIS ULCERATIVE
     Route: 048
     Dates: start: 20180321, end: 20180407
  30. PETHIDINE HYDROCHLORIDE [Concomitant]
     Active Substance: MEPERIDINE HYDROCHLORIDE
     Route: 065
  31. PRIMPERAN [Concomitant]
     Active Substance: METOCLOPRAMIDE HYDROCHLORIDE
     Route: 065
  32. FUNGUARD [Concomitant]
     Active Substance: MICAFUNGIN SODIUM
     Route: 065
  33. FAMOTIDINE. [Concomitant]
     Active Substance: FAMOTIDINE
     Route: 065
  34. PANTHENOL [Concomitant]
     Active Substance: PANTHENOL
     Route: 065
  35. SOLYUGEN [Concomitant]
     Route: 065
  36. ISOTONIC SODIUM CHLORIDE SOLUTION [Concomitant]
     Active Substance: SODIUM CHLORIDE
     Route: 065
  37. BEZAFIBRATE [Concomitant]
     Active Substance: BEZAFIBRATE
     Route: 048
  38. CLOSTRIDIUM BUTYRICUM [Concomitant]
     Active Substance: CLOSTRIDIUM BUTYRICUM SPORES STRAIN M-55
     Indication: COLITIS ULCERATIVE
     Route: 048
     Dates: end: 20180407
  39. LIALDA [Concomitant]
     Active Substance: MESALAMINE
     Indication: COLITIS ULCERATIVE
     Route: 048
     Dates: start: 20180322
  40. CRAVIT [Concomitant]
     Active Substance: LEVOFLOXACIN
     Route: 065
  41. OLIVE OIL [Concomitant]
     Active Substance: OLIVE OIL
     Route: 065
  42. AZANIN [Concomitant]
     Active Substance: AZATHIOPRINE
     Indication: COLITIS ULCERATIVE
     Route: 048
     Dates: end: 20180407
  43. MEROPENEM. [Concomitant]
     Active Substance: MEROPENEM
     Route: 065
  44. LASIX [Concomitant]
     Active Substance: FUROSEMIDE
     Route: 065
  45. FERRIC OXIDE, SACCHARATED [Concomitant]
     Route: 042
  46. SOLDACTONE [Concomitant]
     Active Substance: CANRENOATE POTASSIUM
     Route: 042
  47. OMEPRAZOLE SODIUM [Concomitant]
     Active Substance: OMEPRAZOLE SODIUM
     Route: 065
  48. URSODEOXYCHOLIC ACID [Concomitant]
     Active Substance: URSODIOL
     Route: 048
  49. RECOMODULIN [Concomitant]
     Active Substance: THROMBOMODULIN ALFA
     Route: 041
  50. FINIBAX [Concomitant]
     Active Substance: DORIPENEM MONOHYDRATE
     Route: 041
  51. ZINC OXIDE. [Concomitant]
     Active Substance: ZINC OXIDE
     Route: 061

REACTIONS (10)
  - Candida sepsis [Fatal]
  - Acute kidney injury [Fatal]
  - Hepatic function abnormal [Fatal]
  - Abdominal pain [Not Recovered/Not Resolved]
  - Colitis ulcerative [Fatal]
  - Lower gastrointestinal haemorrhage [Not Recovered/Not Resolved]
  - Toxic skin eruption [Recovering/Resolving]
  - Pyrexia [Not Recovered/Not Resolved]
  - Leukopenia [Recovering/Resolving]
  - Disseminated intravascular coagulation [Fatal]

NARRATIVE: CASE EVENT DATE: 20180312
